FAERS Safety Report 8516562-9 (Version None)
Quarter: 2012Q3

REPORT INFORMATION
  Report Type: 
  Country: None (occurrence: None)
  Receive Date: 20120711
  Receipt Date: 20120711
  Transmission Date: 20120928
  Serious: Yes (Other)
  Sender: FDA-Public Use
  Company Number: None

PATIENT
  Age: 21 Year
  Sex: Female
  Weight: 73.4827 kg

DRUGS (1)
  1. LO LOESTRIN FE [Suspect]
     Dosage: ONE PILL A DAY EVERY DAY
     Dates: start: 20120523, end: 20120706

REACTIONS (6)
  - CHEST PAIN [None]
  - ACNE [None]
  - NAUSEA [None]
  - MIGRAINE [None]
  - CRYING [None]
  - ABDOMINAL PAIN [None]
